FAERS Safety Report 11259714 (Version 1)
Quarter: 2015Q3

REPORT INFORMATION
  Report Type: Spontaneous
  Country: US (occurrence: None)
  Receive Date: 20150709
  Receipt Date: 20150709
  Transmission Date: 20151125
  Serious: Yes (Other)
  Sender: FDA-Public Use
  Company Number: None

PATIENT
  Age: 44 Year
  Sex: Female
  Weight: 97.52 kg

DRUGS (10)
  1. EPA/DHA DAILY VITAMIN? [Concomitant]
  2. HUMIRA [Concomitant]
     Active Substance: ADALIMUMAB
  3. ARMOUR THYROID [Concomitant]
     Active Substance: THYROID, PORCINE\THYROID, UNSPECIFIED
  4. BIOTIN VITAMINS [Concomitant]
  5. DYMISTA [Concomitant]
     Active Substance: AZELASTINE HYDROCHLORIDE\FLUTICASONE PROPIONATE
  6. ZYRTEC [Concomitant]
     Active Substance: CETIRIZINE HYDROCHLORIDE
  7. NEUROTIN [Concomitant]
     Active Substance: GABAPENTIN
  8. ADVAIR HFA [Concomitant]
     Active Substance: FLUTICASONE PROPIONATE\SALMETEROL XINAFOATE
  9. CALCIUM [Concomitant]
     Active Substance: CALCIUM
  10. LEVAQUIN [Suspect]
     Active Substance: LEVOFLOXACIN
     Indication: PNEUMONIA
     Route: 048
     Dates: start: 20150706, end: 20150707

REACTIONS (4)
  - Hypoaesthesia [None]
  - Paraesthesia [None]
  - Pharyngeal oedema [None]
  - Pain in extremity [None]

NARRATIVE: CASE EVENT DATE: 20150706
